FAERS Safety Report 25317705 (Version 1)
Quarter: 2025Q2

REPORT INFORMATION
  Report Type: Spontaneous
  Country: US (occurrence: US)
  Receive Date: 20250515
  Receipt Date: 20250515
  Transmission Date: 20250716
  Serious: No
  Sender: DR REDDYS
  Company Number: US-DRL-USA-USA/2025/05/006559

PATIENT
  Age: 78 Year
  Sex: Male

DRUGS (1)
  1. LENALIDOMIDE [Suspect]
     Active Substance: LENALIDOMIDE
     Indication: Product use in unapproved indication
     Route: 065

REACTIONS (2)
  - Lethargy [Unknown]
  - Asthenia [Unknown]
